FAERS Safety Report 21331888 (Version 1)
Quarter: 2022Q3

REPORT INFORMATION
  Report Type: Report from Study
  Country: IT (occurrence: IT)
  Receive Date: 20220914
  Receipt Date: 20220914
  Transmission Date: 20221026
  Serious: Yes (Hospitalization, Other)
  Sender: FDA-Public Use
  Company Number: None

PATIENT
  Age: 3 Year
  Sex: Female
  Weight: 12 kg

DRUGS (4)
  1. METHOTREXATE (METHOTREXATE SODIUM) [Suspect]
     Active Substance: METHOTREXATE SODIUM
     Indication: Acute lymphocytic leukaemia
     Dosage: METOTRESSATO TEVA, UNIT DOSE : 2765 MG, DURATION : 1 DAY
     Dates: start: 20220712, end: 20220713
  2. METHOTREXATE (METHOTREXATE SODIUM) [Suspect]
     Active Substance: METHOTREXATE SODIUM
     Dosage: METOTRESSATO TEVA, UNIT DOSE : 12 MG
     Dates: start: 20220713, end: 20220713
  3. PURINETHOL [Suspect]
     Active Substance: MERCAPTOPURINE
     Indication: Acute lymphocytic leukaemia
     Dosage: 12.5 MILLIGRAM DAILY; 12,5 MG/DAY, FREQUENCY TIME : 24 HRS, DURATION : 67 DAYS
     Dates: start: 20220524, end: 20220730
  4. LEUCOVORIN CALCIUM [Concomitant]
     Active Substance: LEUCOVORIN CALCIUM
     Indication: Chemotherapy toxicity attenuation
     Dosage: 4 MILLIGRAM DAILY; FREQUENCY TIME : 24 HRS, DURATION : 1 DAY
     Dates: start: 20220714, end: 20220715

REACTIONS (3)
  - Pancytopenia [Recovered/Resolved]
  - Klebsiella infection [Recovered/Resolved]
  - Pyrexia [Recovered/Resolved]

NARRATIVE: CASE EVENT DATE: 20220714
